FAERS Safety Report 9178272 (Version 3)
Quarter: 2013Q2

REPORT INFORMATION
  Report Type: Spontaneous
  Country: IT (occurrence: IT)
  Receive Date: 20130321
  Receipt Date: 20130530
  Transmission Date: 20140414
  Serious: Yes (Hospitalization)
  Sender: FDA-Public Use
  Company Number: IT-BRISTOL-MYERS SQUIBB COMPANY-17473059

PATIENT
  Age: 86 Year
  Sex: Female

DRUGS (6)
  1. COUMADIN TABS 5 MG [Suspect]
     Indication: CARDIAC VALVE PROSTHESIS USER
     Dosage: 1DF:0.5/UNIT
     Route: 048
     Dates: start: 20000101, end: 20130227
  2. ALLOPURINOL [Suspect]
     Indication: HYPERURICAEMIA
     Route: 048
     Dates: start: 20000101, end: 20130227
  3. EUTIROX [Suspect]
     Indication: HYPOTHYROIDISM
     Route: 048
     Dates: start: 19800101, end: 20130227
  4. FUROSEMIDE [Concomitant]
  5. CANRENONE [Concomitant]
  6. BISOPROLOL HEMIFUMARATE [Concomitant]

REACTIONS (3)
  - Rectal haemorrhage [Not Recovered/Not Resolved]
  - Skin ulcer haemorrhage [Not Recovered/Not Resolved]
  - Overdose [Not Recovered/Not Resolved]
